FAERS Safety Report 6286200-7 (Version None)
Quarter: 2009Q3

REPORT INFORMATION
  Report Type: 
  Country: None (occurrence: None)
  Receive Date: 20090728
  Receipt Date: 20090717
  Transmission Date: 20100115
  Serious: Yes (Hospitalization)
  Sender: FDA-Public Use
  Company Number: AU-NOVOPROD-289264

PATIENT
  Sex: Male
  Weight: 69.9 kg

DRUGS (16)
  1. MIXTARD HUMAN 70/30 [Suspect]
     Indication: TYPE 2 DIABETES MELLITUS
     Dosage: 30 IU, QD IN THE MORNING
     Route: 058
  2. COUMADIN [Concomitant]
     Dosage: 1 MG, QD (MINIMAL DAILY DOSAGE)
     Route: 048
  3. COUMADIN [Concomitant]
     Dosage: 5 MG, PRN
     Route: 048
  4. COUMADIN [Concomitant]
     Dosage: 2 MG, UNK
  5. FORMET [Concomitant]
     Dosage: 1000 MG, QD
     Route: 048
  6. CARTIA                             /00002701/ [Concomitant]
     Dosage: 100 MG, QD
     Route: 048
  7. OROXINE [Concomitant]
     Dosage: 50 UG, MONDAY TO FRIDAY
     Route: 048
  8. OROXINE [Concomitant]
     Dosage: 100 UG, QD
     Route: 048
  9. UREX                               /00024401/ [Concomitant]
     Dosage: 20 MG, QD
     Route: 048
  10. LANOXIN [Concomitant]
     Dosage: 62.5 UG, QD
     Route: 048
  11. FIBSOL [Concomitant]
     Dosage: 20 MG, QD
     Route: 048
  12. SIMVAR [Concomitant]
     Dosage: 40 MG, QD
     Route: 048
  13. NITROLINGUAL PUMPSPRAY [Concomitant]
     Dosage: 400 UG, PRN 1 SPRAY
  14. VENTOLIN [Concomitant]
     Dosage: UNK, PRN
     Route: 048
  15. BIOGLAN [Concomitant]
     Dosage: UNK, UNK
     Route: 048
  16. NOVORAPID PENFILL [Concomitant]
     Dosage: 14 U, QD
     Route: 058
     Dates: start: 20081101

REACTIONS (1)
  - CORONARY ARTERY BYPASS [None]
